FAERS Safety Report 7515684-9 (Version None)
Quarter: 2011Q2

REPORT INFORMATION
  Report Type: 
  Country: None (occurrence: None)
  Receive Date: 20110601
  Receipt Date: 20100716
  Transmission Date: 20111010
  Serious: Yes (Other)
  Sender: FDA-Public Use
  Company Number: US-PFIZER INC-2010089397

PATIENT
  Sex: Female
  Weight: 61.224 kg

DRUGS (6)
  1. CHANTIX [Suspect]
     Dosage: 1 MG, 2X/DAY
     Route: 048
     Dates: start: 20080101
  2. CLARITIN [Concomitant]
     Indication: EAR INFECTION
     Dosage: UNK
  3. CHANTIX [Suspect]
     Dosage: 1 MG, 2X/DAY
     Route: 048
     Dates: end: 20100712
  4. CHANTIX [Suspect]
     Indication: SMOKING CESSATION THERAPY
     Dosage: 0.5 MG, 1X/DAY
     Route: 048
     Dates: start: 20080101
  5. FLONASE [Concomitant]
     Dosage: UNK
     Route: 045
  6. ZITHROMAX [Concomitant]
     Indication: EAR INFECTION
     Dosage: UNK

REACTIONS (7)
  - HEADACHE [None]
  - DEPRESSION [None]
  - BLOOD IRON DECREASED [None]
  - NAUSEA [None]
  - PANIC ATTACK [None]
  - SOMNOLENCE [None]
  - ANXIETY [None]
